FAERS Safety Report 17263294 (Version 1)
Quarter: 2020Q1

REPORT INFORMATION
  Report Type: Spontaneous
  Country: US (occurrence: US)
  Receive Date: 20200113
  Receipt Date: 20200113
  Transmission Date: 20200409
  Serious: No
  Sender: FDA-Public Use
  Company Number: US-SIGMAPHARM LABORATORIES, LLC-2019SIG00010

PATIENT
  Age: 48 Year
  Sex: Female
  Weight: 70.3 kg

DRUGS (4)
  1. LEVOXYL [Concomitant]
     Active Substance: LEVOTHYROXINE SODIUM
  2. LIOTHYRONINE SODIUM. [Suspect]
     Active Substance: LIOTHYRONINE SODIUM
     Dosage: 5 MCG, 1X/DAY
     Route: 048
     Dates: start: 201901, end: 20190121
  3. IBUPROFEN. [Concomitant]
     Active Substance: IBUPROFEN
     Dosage: UNK, AS NEEDED
  4. LIOTHYRONINE SODIUM. [Suspect]
     Active Substance: LIOTHYRONINE SODIUM
     Indication: HYPOTHYROIDISM
     Dosage: 5 MCG, 1X/DAY
     Route: 048
     Dates: start: 20190109, end: 201901

REACTIONS (12)
  - Pain in jaw [Recovered/Resolved]
  - Product substitution issue [Recovered/Resolved]
  - Muscular weakness [Recovered/Resolved]
  - Trichorrhexis [Recovered/Resolved]
  - Irritability [Recovered/Resolved]
  - Fatigue [Recovering/Resolving]
  - Hair texture abnormal [Recovered/Resolved]
  - Skin texture abnormal [Recovered/Resolved]
  - Alopecia [Recovered/Resolved]
  - Headache [Recovered/Resolved]
  - Abdominal pain upper [Recovered/Resolved]
  - Asthenia [Recovered/Resolved]

NARRATIVE: CASE EVENT DATE: 201901
